FAERS Safety Report 5794879-9 (Version None)
Quarter: 2008Q2

REPORT INFORMATION
  Report Type: 
  Country: None (occurrence: None)
  Receive Date: 20080627
  Receipt Date: 20080627
  Transmission Date: 20081010
  Serious: No
  Sender: FDA-Public Use
  Company Number: None

PATIENT
  Age: 86 Year
  Sex: Female
  Weight: 58.9676 kg

DRUGS (1)
  1. PHENYTON SODIUM 1GR CAP [Suspect]
     Indication: CONVULSION
     Dosage: 100 MG 3 X DAY PO
     Route: 048
     Dates: start: 19920901, end: 20080101

REACTIONS (1)
  - RENAL FAILURE CHRONIC [None]
